FAERS Safety Report 4265664-4 (Version None)
Quarter: 2004Q1

REPORT INFORMATION
  Report Type: 
  Country: None (occurrence: None)
  Receive Date: 20040107
  Receipt Date: 20040102
  Transmission Date: 20041129
  Serious: Yes (Hospitalization, Other)
  Sender: FDA-Public Use
  Company Number: US-GLAXOSMITHKLINE-A0490959A

PATIENT
  Sex: Female

DRUGS (7)
  1. WELLBUTRIN [Suspect]
     Indication: DEPRESSION
     Dosage: 150MG TWICE PER DAY
     Route: 048
     Dates: start: 20030901, end: 20030101
  2. WELLBUTRIN [Suspect]
     Dosage: 300MG SEE DOSAGE TEXT
     Route: 048
     Dates: start: 20030101, end: 20031201
  3. LIPITOR [Concomitant]
  4. SYNTHROID [Concomitant]
  5. UNKNOWN MEDICATION [Concomitant]
  6. MULTIVITAMIN [Concomitant]
  7. ARICEPT [Concomitant]
     Indication: AMNESIA

REACTIONS (4)
  - AMNESIA [None]
  - CONDITION AGGRAVATED [None]
  - CONVULSION [None]
  - MEDICATION ERROR [None]
